FAERS Safety Report 4577572-X (Version None)
Quarter: 2005Q1

REPORT INFORMATION
  Report Type: 
  Country: None (occurrence: None)
  Receive Date: 20050127
  Receipt Date: 20041004
  Transmission Date: 20050727
  Serious: No
  Sender: FDA-Public Use
  Company Number: US_0410107076

PATIENT
  Age: 55 Year
  Sex: Female
  Weight: 86 kg

DRUGS (4)
  1. STRATTERA [Suspect]
     Indication: ATTENTION DEFICIT/HYPERACTIVITY DISORDER
     Dosage: 40 MG/L DAY
     Dates: start: 20040929
  2. HUMALOG [Suspect]
     Dosage: 0.6 U HOUR
  3. LISINOPRIL AND HYDROCHLOROTHIAZIDE [Concomitant]
  4. TERAZOSIN [Concomitant]

REACTIONS (1)
  - SOMNOLENCE [None]
